FAERS Safety Report 7731964-6 (Version None)
Quarter: 2011Q3

REPORT INFORMATION
  Report Type: 
  Country: None (occurrence: None)
  Receive Date: 20110906
  Receipt Date: 20110718
  Transmission Date: 20111222
  Serious: No
  Sender: FDA-Public Use
  Company Number: US-AMGEN-USASP2011028662

PATIENT
  Age: 81 Year
  Sex: Female

DRUGS (10)
  1. PROLIA [Suspect]
     Indication: OSTEOPOROSIS POSTMENOPAUSAL
     Dosage: UNK UNK, Q6MO
     Route: 058
     Dates: start: 20110330
  2. TRAMADOL HYDROCHLORIDE [Concomitant]
  3. COLACE [Concomitant]
  4. SYNVISC [Concomitant]
  5. ESTRADIOL [Concomitant]
  6. BYSTOLIC [Concomitant]
  7. LOTREL [Concomitant]
  8. CALCIUM CARBONATE [Concomitant]
  9. MOBIC [Concomitant]
  10. VITAMINS                           /00067501/ [Concomitant]

REACTIONS (2)
  - MYALGIA [None]
  - GAIT DISTURBANCE [None]
